FAERS Safety Report 13738631 (Version 1)
Quarter: 2017Q3

REPORT INFORMATION
  Report Type: Spontaneous
  Country: US (occurrence: US)
  Receive Date: 20170710
  Receipt Date: 20170710
  Transmission Date: 20171127
  Serious: Yes (Death, Other)
  Sender: FDA-Public Use
  Company Number: US-SAOL THERAPEUTICS-2017SAO00300

PATIENT
  Age: 65 Year
  Sex: Male
  Weight: 48.53 kg

DRUGS (5)
  1. LORAZEPAM. [Suspect]
     Active Substance: LORAZEPAM
  2. HYDROCODONE [Suspect]
     Active Substance: HYDROCODONE
  3. BACLOFEN. [Suspect]
     Active Substance: BACLOFEN
     Dosage: 799.3 ?G, \DAY
     Route: 037
     Dates: start: 20160913
  4. OXYCODONE [Suspect]
     Active Substance: OXYCODONE
  5. TRAMADOL. [Suspect]
     Active Substance: TRAMADOL

REACTIONS (3)
  - Overdose [Fatal]
  - Toxicity to various agents [Unknown]
  - Muscle spasticity [Unknown]

NARRATIVE: CASE EVENT DATE: 201610
